FAERS Safety Report 6593336-X (Version None)
Quarter: 2010Q1

REPORT INFORMATION
  Report Type: 
  Country: None (occurrence: None)
  Receive Date: 20100222
  Receipt Date: 20090205
  Transmission Date: 20100710
  Serious: Yes (Other)
  Sender: FDA-Public Use
  Company Number: US-BRISTOL-MYERS SQUIBB COMPANY-14495253

PATIENT
  Sex: Female

DRUGS (1)
  1. ORENCIA [Suspect]
     Indication: RHEUMATOID ARTHRITIS
     Dosage: RECEIVED APPROX. 30 INFUSIONS

REACTIONS (1)
  - LUNG SQUAMOUS CELL CARCINOMA STAGE UNSPECIFIED [None]
